FAERS Safety Report 11001520 (Version 1)
Quarter: 2015Q2

REPORT INFORMATION
  Report Type: Spontaneous
  Country: CN (occurrence: CN)
  Receive Date: 20150408
  Receipt Date: 20150408
  Transmission Date: 20150821
  Serious: Yes (Hospitalization)
  Sender: FDA-Public Use
  Company Number: PHHY2015CN038813

PATIENT
  Age: 42 Year
  Sex: Male

DRUGS (2)
  1. PROPYLTHIOURACIL. [Suspect]
     Active Substance: PROPYLTHIOURACIL
     Indication: HYPERTHYROIDISM
     Route: 065
  2. THIAMAZOLE [Suspect]
     Active Substance: METHIMAZOLE
     Indication: HYPERTHYROIDISM
     Route: 065
     Dates: start: 2010

REACTIONS (9)
  - Acute promyelocytic leukaemia [Recovering/Resolving]
  - Acute myeloid leukaemia [Recovering/Resolving]
  - Pallor [Recovering/Resolving]
  - Pancytopenia [Recovering/Resolving]
  - Cough [Recovering/Resolving]
  - Gingival pain [Recovering/Resolving]
  - Fatigue [Recovering/Resolving]
  - Pyrexia [Recovering/Resolving]
  - Gaze palsy [Recovering/Resolving]

NARRATIVE: CASE EVENT DATE: 201209
